FAERS Safety Report 14435857 (Version 1)
Quarter: 2018Q1

REPORT INFORMATION
  Report Type: Spontaneous
  Country: US (occurrence: US)
  Receive Date: 20180124
  Receipt Date: 20180124
  Transmission Date: 20180509
  Serious: Yes (Disabling)
  Sender: FDA-Public Use
  Company Number: None

PATIENT
  Age: 48 Year
  Sex: Female
  Weight: 96.75 kg

DRUGS (10)
  1. WELLBUTRIN [Concomitant]
     Active Substance: BUPROPION HYDROCHLORIDE
  2. VITAMIN D3 [Concomitant]
     Active Substance: CHOLECALCIFEROL
  3. METFORMIN [Concomitant]
     Active Substance: METFORMIN HYDROCHLORIDE
  4. VIVELLE [Concomitant]
     Active Substance: ESTRADIOL
  5. TOPIRAMATE 50 MG [Suspect]
     Active Substance: TOPIRAMATE
     Indication: MIGRAINE
     Dosage: ?          QUANTITY:2 TABLET(S);?
     Route: 048
     Dates: start: 20171027, end: 20180117
  6. SYNTHROID [Concomitant]
     Active Substance: LEVOTHYROXINE SODIUM
  7. COQ10 [Concomitant]
     Active Substance: UBIDECARENONE
  8. TOPAMAX [Concomitant]
     Active Substance: TOPIRAMATE
  9. CYTOMEL [Concomitant]
     Active Substance: LIOTHYRONINE SODIUM
  10. HYDROCHLOROTHIAZIDE. [Concomitant]
     Active Substance: HYDROCHLOROTHIAZIDE

REACTIONS (8)
  - Product substitution issue [None]
  - Paraesthesia [None]
  - Muscle twitching [None]
  - Depression [None]
  - Dyskinesia [None]
  - Migraine [None]
  - Insomnia [None]
  - Increased appetite [None]

NARRATIVE: CASE EVENT DATE: 20171027
